FAERS Safety Report 21394290 (Version 1)
Quarter: 2022Q3

REPORT INFORMATION
  Report Type: Spontaneous
  Country: CN (occurrence: CN)
  Receive Date: 20220930
  Receipt Date: 20220930
  Transmission Date: 20221026
  Serious: Yes (Hospitalization, Other)
  Sender: FDA-Public Use
  Company Number: CN-BRISTOL-MYERS SQUIBB COMPANY-2022-112018

PATIENT
  Age: 58 Year
  Sex: Male

DRUGS (10)
  1. OPDIVO [Suspect]
     Active Substance: NIVOLUMAB
     Indication: Gastric cancer
     Dosage: DOSE : 200MG;     FREQ : ^D1^ ^Q3W^
     Route: 041
     Dates: start: 20220303
  2. OPDIVO [Suspect]
     Active Substance: NIVOLUMAB
     Route: 041
     Dates: start: 20220718
  3. OPDIVO [Suspect]
     Active Substance: NIVOLUMAB
     Route: 041
     Dates: start: 20220820, end: 20220820
  4. PACLITAXEL [Suspect]
     Active Substance: PACLITAXEL
     Indication: Product used for unknown indication
     Route: 065
     Dates: start: 20220303
  5. PACLITAXEL [Suspect]
     Active Substance: PACLITAXEL
     Route: 065
     Dates: start: 20220718
  6. PACLITAXEL [Suspect]
     Active Substance: PACLITAXEL
     Route: 065
     Dates: start: 20220820, end: 20220820
  7. TEGAFUR [Suspect]
     Active Substance: TEGAFUR
     Indication: Product used for unknown indication
     Dosage: 40MGD1-14
     Route: 065
     Dates: start: 20220303
  8. TEGAFUR [Suspect]
     Active Substance: TEGAFUR
     Route: 065
     Dates: start: 20220718
  9. TEGAFUR [Suspect]
     Active Substance: TEGAFUR
     Route: 065
     Dates: start: 20220820, end: 20220902
  10. OXALIPLATIN [Suspect]
     Active Substance: OXALIPLATIN
     Indication: Product used for unknown indication
     Dosage: 150 MG D1
     Route: 065
     Dates: start: 20220303

REACTIONS (3)
  - Hypoaesthesia [Unknown]
  - Myelosuppression [Recovering/Resolving]
  - Prescribed underdose [Unknown]

NARRATIVE: CASE EVENT DATE: 20220101
